FAERS Safety Report 8519365-4 (Version None)
Quarter: 2012Q3

REPORT INFORMATION
  Report Type: 
  Country: None (occurrence: None)
  Receive Date: 20120718
  Receipt Date: 20120710
  Transmission Date: 20120928
  Serious: Yes (Hospitalization)
  Sender: FDA-Public Use
  Company Number: PHHY2012JP059787

PATIENT
  Age: 57 Year
  Sex: Male

DRUGS (2)
  1. LOXOPROFEN [Suspect]
     Indication: ARTHRALGIA
     Route: 048
     Dates: start: 20091201
  2. DICLOFENAC [Suspect]
     Indication: ARTHRALGIA
     Route: 048
     Dates: start: 20091201

REACTIONS (2)
  - NEPHROTIC SYNDROME [None]
  - TUBULOINTERSTITIAL NEPHRITIS [None]
